FAERS Safety Report 5232483-1 (Version None)
Quarter: 2007Q1

REPORT INFORMATION
  Report Type: 
  Country: None (occurrence: None)
  Receive Date: 20061205
  Receipt Date: 20060807
  Transmission Date: 20070707
  Serious: No
  Sender: FDA-Public Use
  Company Number: 06P-163-0338306-00

PATIENT
  Age: 55 Year
  Sex: Male

DRUGS (3)
  1. TRICOR [Suspect]
     Indication: BLOOD CHOLESTEROL INCREASED
     Dosage: SEE IMAGE
     Route: 048
     Dates: start: 20060401, end: 20060501
  2. TRICOR [Suspect]
     Indication: BLOOD CHOLESTEROL INCREASED
     Dosage: SEE IMAGE
     Route: 048
     Dates: start: 20060501, end: 20060601
  3. CRESTOR [Suspect]
     Indication: BLOOD CHOLESTEROL INCREASED
     Dosage: PER ORAL
     Route: 048
     Dates: start: 20060401, end: 20060501

REACTIONS (3)
  - CHROMATURIA [None]
  - HEPATITIS [None]
  - LETHARGY [None]
